FAERS Safety Report 9301576 (Version 1)
Quarter: 2013Q2

REPORT INFORMATION
  Report Type: Spontaneous
  Country: US (occurrence: None)
  Receive Date: 20130520
  Receipt Date: 20130520
  Transmission Date: 20140414
  Serious: Yes (Other)
  Sender: FDA-Public Use
  Company Number: None

PATIENT
  Age: 59 Year
  Sex: Male
  Weight: 77.11 kg

DRUGS (2)
  1. BUPROPION HCL [Suspect]
     Indication: ANTIDEPRESSANT THERAPY
     Dosage: 1 TABLET DAILY
     Route: 048
     Dates: start: 20130501, end: 20130519
  2. BUPROPION HCL [Suspect]
     Indication: TRICHOTILLOMANIA
     Dosage: 1 TABLET DAILY
     Route: 048
     Dates: start: 20130501, end: 20130519

REACTIONS (2)
  - Drug ineffective [None]
  - Product substitution issue [None]
